FAERS Safety Report 9356045 (Version 1)
Quarter: 2013Q2

REPORT INFORMATION
  Report Type: Spontaneous
  Country: DE (occurrence: DE)
  Receive Date: 20130619
  Receipt Date: 20130619
  Transmission Date: 20140414
  Serious: Yes (Death)
  Sender: FDA-Public Use
  Company Number: DE-MYLANLABS-2013S1012643

PATIENT
  Age: 43 Year
  Sex: Male

DRUGS (2)
  1. REMIFENTANIL [Suspect]
  2. DIPYRONE [Suspect]

REACTIONS (2)
  - Overdose [Fatal]
  - Respiratory depression [Fatal]
